FAERS Safety Report 10378588 (Version 1)
Quarter: 2014Q3

REPORT INFORMATION
  Report Type: Spontaneous
  Country: US (occurrence: None)
  Receive Date: 20140811
  Receipt Date: 20140811
  Transmission Date: 20150326
  Serious: Yes (Life-Threatening, Other)
  Sender: FDA-Public Use
  Company Number: None

PATIENT
  Age: 53 Year
  Sex: Female
  Weight: 53.52 kg

DRUGS (2)
  1. MOBIC [Suspect]
     Active Substance: MELOXICAM
     Indication: ARTHRITIS
     Dosage: 1 PILL DAILY DAILY BY MOUTH
     Route: 048
     Dates: start: 20140716, end: 20140716
  2. KLONOPIN [Concomitant]
     Active Substance: CLONAZEPAM

REACTIONS (6)
  - Headache [None]
  - Dyspnoea [None]
  - Dizziness [None]
  - Wheezing [None]
  - Asthenia [None]
  - Speech disorder [None]

NARRATIVE: CASE EVENT DATE: 20140716
